FAERS Safety Report 5225361-5 (Version None)
Quarter: 2007Q1

REPORT INFORMATION
  Report Type: 
  Country: None (occurrence: None)
  Receive Date: 20070131
  Receipt Date: 20070126
  Transmission Date: 20070707
  Serious: Yes (Other)
  Sender: FDA-Public Use
  Company Number: US-BOEHRINGER INGELHEIM PHARMACEUTICALS, INC.-2007-BP-01326BP

PATIENT
  Sex: Male

DRUGS (7)
  1. APTIVUS/RITONAVIR CAPSULES [Suspect]
     Indication: HIV INFECTION
     Dosage: TPV/RTV  1000/? MG
     Route: 048
     Dates: start: 20060621
  2. TRUVADA [Concomitant]
     Indication: HIV INFECTION
     Dates: start: 20060621
  3. KALETRA [Concomitant]
     Indication: HIV INFECTION
     Dates: start: 20060621
  4. DIFLUCAN [Concomitant]
     Indication: CRYPTOCOCCOSIS
     Dates: start: 20040901
  5. BACTRIM DS [Concomitant]
     Indication: ANTIFUNGAL PROPHYLAXIS
     Dates: start: 20050405
  6. DIOVAN HCT [Concomitant]
     Indication: HYPERTENSION
     Dates: start: 20050811
  7. NORVASC [Concomitant]
     Indication: HYPERTENSION
     Dates: start: 20050216

REACTIONS (1)
  - HYPHAEMA [None]
